FAERS Safety Report 11407220 (Version 3)
Quarter: 2015Q4

REPORT INFORMATION
  Report Type: Spontaneous
  Country: JP (occurrence: JP)
  Receive Date: 20150821
  Receipt Date: 20151215
  Transmission Date: 20160304
  Serious: Yes (Hospitalization, Congenital Anomaly, Other)
  Sender: FDA-Public Use
  Company Number: PHJP2015JP014182

PATIENT
  Age: 0 Day
  Weight: .58 kg

DRUGS (4)
  1. LEVOTHYROXINE SODIUM. [Suspect]
     Active Substance: LEVOTHYROXINE SODIUM
     Indication: FOETAL EXPOSURE DURING PREGNANCY
     Dosage: UNK
     Route: 064
  2. VOLTAREN SUP [Suspect]
     Active Substance: DICLOFENAC SODIUM
     Indication: FOETAL EXPOSURE DURING PREGNANCY
     Dosage: UNK
     Route: 064
  3. MAGNESIUM [Suspect]
     Active Substance: MAGNESIUM
     Indication: FOETAL EXPOSURE DURING PREGNANCY
     Dosage: UNK
     Route: 064
  4. UTERON INTRAVENOUS INFUSION [Suspect]
     Active Substance: RITODRINE HYDROCHLORIDE
     Indication: FOETAL EXPOSURE DURING PREGNANCY
     Dosage: UNK
     Route: 064

REACTIONS (16)
  - Patent ductus arteriosus [Unknown]
  - Low birth weight baby [Unknown]
  - Erythroblastosis foetalis [Unknown]
  - Retinopathy of prematurity [Unknown]
  - Circulatory failure neonatal [Unknown]
  - Anaemia [Unknown]
  - Hypotension [Unknown]
  - Abdominal distension [Recovering/Resolving]
  - Foetal exposure during pregnancy [Unknown]
  - Ductus arteriosus stenosis foetal [Unknown]
  - Neonatal respiratory distress syndrome [Unknown]
  - Rickets [Unknown]
  - Foetal heart rate decreased [Unknown]
  - Urine output decreased [Unknown]
  - Hypospadias [Unknown]
  - Premature baby [Unknown]

NARRATIVE: CASE EVENT DATE: 20150417
